FAERS Safety Report 20156606 (Version 1)
Quarter: 2021Q4

REPORT INFORMATION
  Report Type: Spontaneous
  Country: GB (occurrence: GB)
  Receive Date: 20211207
  Receipt Date: 20211207
  Transmission Date: 20220303
  Serious: Yes (Other)
  Sender: FDA-Public Use
  Company Number: GB-LUPIN PHARMACEUTICALS INC.-2021-23562

PATIENT
  Weight: 1.54 kg

DRUGS (2)
  1. LEVOTHYROXINE SODIUM [Suspect]
     Active Substance: LEVOTHYROXINE SODIUM
     Indication: Thyroxine therapy
     Dosage: UNK
     Route: 064
  2. CARBIMAZOLE [Suspect]
     Active Substance: CARBIMAZOLE
     Indication: Tachycardia foetal
     Dosage: UNK
     Route: 064

REACTIONS (6)
  - Premature baby [Unknown]
  - Ventricular septal defect [Unknown]
  - Hyperthyroidism [Recovering/Resolving]
  - Cardiomegaly [Unknown]
  - Low birth weight baby [Unknown]
  - Foetal exposure during pregnancy [Unknown]
